FAERS Safety Report 21493394 (Version 1)
Quarter: 2022Q4

REPORT INFORMATION
  Report Type: Spontaneous
  Country: US (occurrence: US)
  Receive Date: 20221021
  Receipt Date: 20221021
  Transmission Date: 20230112
  Serious: Yes (Other)
  Sender: FDA-Public Use
  Company Number: US-CYCLE PHARMACEUTICALS LTD-2022-CYC-000035

PATIENT

DRUGS (9)
  1. NITYR [Suspect]
     Active Substance: NITISINONE
     Indication: Product used for unknown indication
     Dosage: 20 MG, BID (25 MG, ONCE IN THE MORNING AND ONCE IN THE EVENING)
     Route: 048
  2. NITYR [Suspect]
     Active Substance: NITISINONE
     Indication: Product used for unknown indication
     Dosage: 5 MG, BID (25 MG, ONCE IN THE MORNING AND ONCE IN THE EVENING)
     Route: 048
  3. POLYCAL [Concomitant]
     Indication: Product used for unknown indication
     Dosage: 96 G
     Route: 065
  4. HYDROPHILIC [Concomitant]
     Indication: Product used for unknown indication
     Route: 065
  5. ACETAMINOPHEN [Concomitant]
     Active Substance: ACETAMINOPHEN
     Indication: Product used for unknown indication
     Dosage: 325 MG
     Route: 065
  6. SULFAMETHOXAZOLE\TRIMETHOPRIM [Concomitant]
     Active Substance: SULFAMETHOXAZOLE\TRIMETHOPRIM
     Indication: Product used for unknown indication
     Route: 065
  7. POLYETHYLENE GLYCOL 3350 [Concomitant]
     Active Substance: POLYETHYLENE GLYCOL 3350
     Indication: Product used for unknown indication
     Route: 065
  8. ONDANSETRON HCL [Concomitant]
     Active Substance: ONDANSETRON HYDROCHLORIDE
     Indication: Product used for unknown indication
     Dosage: 8 MG
     Route: 065
  9. LIDOCAINE AND PRILOCAINE [Concomitant]
     Active Substance: LIDOCAINE\PRILOCAINE
     Indication: Product used for unknown indication
     Route: 065

REACTIONS (1)
  - Neoplasm malignant [Unknown]
